FAERS Safety Report 13975155 (Version 1)
Quarter: 2017Q3

REPORT INFORMATION
  Report Type: Report from Study
  Country: AU (occurrence: AU)
  Receive Date: 20170914
  Receipt Date: 20170914
  Transmission Date: 20171128
  Serious: Yes (Hospitalization, Other)
  Sender: FDA-Public Use
  Company Number: AU-REGENERON PHARMACEUTICALS, INC.-2017-22088

PATIENT

DRUGS (2)
  1. BETADINE [Concomitant]
     Active Substance: POVIDONE-IODINE
     Indication: INFECTION PROPHYLAXIS
  2. EYLEA [Suspect]
     Active Substance: AFLIBERCEPT
     Indication: NEOVASCULAR AGE-RELATED MACULAR DEGENERATION
     Dosage: UNK
     Route: 031
     Dates: start: 20121201

REACTIONS (7)
  - Injection site pain [Recovered/Resolved]
  - Visual impairment [Not Recovered/Not Resolved]
  - Charles Bonnet syndrome [Not Recovered/Not Resolved]
  - Medication error [Unknown]
  - Ocular hyperaemia [Recovered/Resolved]
  - Pneumonia [Recovering/Resolving]
  - Ocular discomfort [Recovered/Resolved]
